FAERS Safety Report 23549250 (Version 4)
Quarter: 2025Q3

REPORT INFORMATION
  Report Type: Spontaneous
  Country: US (occurrence: US)
  Receive Date: 20240221
  Receipt Date: 20250709
  Transmission Date: 20251020
  Serious: No
  Sender: PFIZER
  Company Number: US-PFIZER INC-PV202400023029

PATIENT
  Age: 78 Year
  Sex: Female

DRUGS (5)
  1. XELJANZ XR [Suspect]
     Active Substance: TOFACITINIB CITRATE
     Dosage: 11 MG, 1X/DAY
     Route: 048
  2. XARELTO [Concomitant]
     Active Substance: RIVAROXABAN
  3. METHOTREXATE [Concomitant]
     Active Substance: METHOTREXATE
  4. METOPROLOL [Concomitant]
     Active Substance: METOPROLOL
  5. FLECAINIDE ACETATE [Concomitant]
     Active Substance: FLECAINIDE ACETATE

REACTIONS (2)
  - Fall [Unknown]
  - Product dispensing error [Unknown]
